FAERS Safety Report 4448953-X (Version None)
Quarter: 2004Q3

REPORT INFORMATION
  Report Type: 
  Country: None (occurrence: None)
  Receive Date: 20040909
  Receipt Date: 20040824
  Transmission Date: 20050211
  Serious: Yes (Hospitalization)
  Sender: FDA-Public Use
  Company Number: 178465

PATIENT
  Age: 53 Year
  Sex: Female
  Weight: 41.7309 kg

DRUGS (3)
  1. AVONEX [Suspect]
     Indication: MULTIPLE SCLEROSIS
     Dosage: 30 MCG QW IM
     Route: 030
     Dates: start: 19970314, end: 20030701
  2. AVONEX [Suspect]
     Indication: MULTIPLE SCLEROSIS
     Dosage: 30 MCG QW IM
     Route: 030
     Dates: start: 20030101
  3. KLONOPIN [Concomitant]

REACTIONS (5)
  - FALL [None]
  - HEADACHE [None]
  - HIP FRACTURE [None]
  - MULTIPLE SCLEROSIS [None]
  - WRIST FRACTURE [None]
